FAERS Safety Report 22271896 (Version 6)
Quarter: 2023Q4

REPORT INFORMATION
  Report Type: Report from Study
  Country: US (occurrence: US)
  Receive Date: 20230502
  Receipt Date: 20231114
  Transmission Date: 20240110
  Serious: Yes (Hospitalization)
  Sender: FDA-Public Use
  Company Number: US-002147023-NVSC2023US097470

PATIENT

DRUGS (1)
  1. KESIMPTA [Suspect]
     Active Substance: OFATUMUMAB
     Indication: Product used for unknown indication
     Dosage: UNK
     Route: 065
     Dates: start: 20230411

REACTIONS (12)
  - Hypoaesthesia [Unknown]
  - Balance disorder [Unknown]
  - Influenza like illness [Unknown]
  - Pyrexia [Unknown]
  - Nausea [Unknown]
  - Chills [Unknown]
  - Condition aggravated [Unknown]
  - Paraesthesia [Unknown]
  - Dysstasia [Unknown]
  - Vomiting [Unknown]
  - Dizziness [Unknown]
  - Asthenia [Unknown]
